FAERS Safety Report 10201595 (Version 1)
Quarter: 2014Q2

REPORT INFORMATION
  Report Type: Spontaneous
  Country: IT (occurrence: IT)
  Receive Date: 20140528
  Receipt Date: 20140528
  Transmission Date: 20141212
  Serious: Yes (Other)
  Sender: FDA-Public Use
  Company Number: IT-SA-2014SA064591

PATIENT
  Age: 40 Year
  Sex: Female

DRUGS (3)
  1. LASIX [Suspect]
     Indication: NEPHROTIC SYNDROME
     Dosage: 500 MG TABLETS
     Route: 048
     Dates: start: 20140113, end: 20140217
  2. LASIX [Suspect]
     Indication: NEPHROTIC SYNDROME
     Dosage: 25 MG TABLETS
     Route: 048
     Dates: start: 20140113, end: 20140217
  3. OMEPRAZOLE [Concomitant]
     Route: 048

REACTIONS (1)
  - Syncope [Recovering/Resolving]
